FAERS Safety Report 21351837 (Version 1)
Quarter: 2022Q3

REPORT INFORMATION
  Report Type: Spontaneous
  Country: BR (occurrence: BR)
  Receive Date: 20220919
  Receipt Date: 20220919
  Transmission Date: 20221027
  Serious: Yes (Death, Other)
  Sender: FDA-Public Use
  Company Number: BR-SA-SAC20220916002042

PATIENT
  Age: 74 Year
  Sex: Male
  Weight: 69 kg

DRUGS (1)
  1. ENOXAPARIN SODIUM [Suspect]
     Active Substance: ENOXAPARIN SODIUM
     Dosage: 40 MG, QD
     Route: 042
     Dates: start: 20220715, end: 20220719

REACTIONS (3)
  - Haemorrhage [Fatal]
  - Circulatory collapse [Unknown]
  - Abdominal pain [Unknown]

NARRATIVE: CASE EVENT DATE: 20220719
